FAERS Safety Report 10067438 (Version 1)
Quarter: 2014Q2

REPORT INFORMATION
  Report Type: Spontaneous
  Country: JP (occurrence: None)
  Receive Date: 20140407
  Receipt Date: 20140407
  Transmission Date: 20141212
  Serious: Yes (Hospitalization)
  Sender: FDA-Public Use
  Company Number: 2014P1002753

PATIENT
  Age: 74 Year
  Sex: Male

DRUGS (1)
  1. HEPARIN [Suspect]
     Route: 042

REACTIONS (7)
  - Cerebral artery occlusion [None]
  - Deep vein thrombosis [None]
  - Pulmonary embolism [None]
  - Heparin-induced thrombocytopenia [None]
  - Cerebral artery embolism [None]
  - Paradoxical embolism [None]
  - Post procedural complication [None]
